FAERS Safety Report 25030897 (Version 1)
Quarter: 2025Q1

REPORT INFORMATION
  Report Type: Spontaneous
  Country: CA (occurrence: CA)
  Receive Date: 20250303
  Receipt Date: 20250303
  Transmission Date: 20250409
  Serious: Yes (Disabling, Other)
  Sender: Haleon PLC
  Company Number: CA-002147023-NVSC2024CA102549

PATIENT
  Age: 28 Year
  Sex: Male

DRUGS (1)
  1. DICLOFENAC [Suspect]
     Active Substance: DICLOFENAC
     Indication: Product used for unknown indication

REACTIONS (11)
  - Ankylosing spondylitis [Unknown]
  - Discomfort [Unknown]
  - Back pain [Unknown]
  - Neck pain [Unknown]
  - Fatigue [Unknown]
  - Abdominal discomfort [Unknown]
  - Joint swelling [Unknown]
  - Sacroiliitis [Unknown]
  - Therapeutic response decreased [Unknown]
  - Arthralgia [Unknown]
  - Musculoskeletal stiffness [Unknown]
